FAERS Safety Report 24004346 (Version 2)
Quarter: 2025Q3

REPORT INFORMATION
  Report Type: Spontaneous
  Country: EU (occurrence: EU)
  Receive Date: 20240624
  Receipt Date: 20250728
  Transmission Date: 20251021
  Serious: Yes (Other)
  Sender: AUROBINDO
  Company Number: EU-MLMSERVICE-20240426-PI040358-00306-1

PATIENT
  Age: 74 Year
  Sex: Male

DRUGS (4)
  1. MYCOPHENOLIC ACID [Suspect]
     Active Substance: MYCOPHENOLIC ACID
     Indication: Immunosuppressant drug therapy
     Route: 065
     Dates: start: 2012
  2. TERBINAFINE [Suspect]
     Active Substance: TERBINAFINE
     Indication: Aspergillus infection
     Route: 065
  3. PREDNISONE [Suspect]
     Active Substance: PREDNISONE
     Indication: Immunosuppressant drug therapy
     Route: 065
     Dates: start: 2012
  4. TACROLIMUS [Suspect]
     Active Substance: TACROLIMUS
     Indication: Immunosuppressant drug therapy
     Route: 065
     Dates: start: 2012

REACTIONS (3)
  - Aspergillus infection [Recovered/Resolved]
  - Fungal skin infection [Recovered/Resolved]
  - Therapeutic response unexpected [Unknown]
